FAERS Safety Report 25972839 (Version 1)
Quarter: 2025Q4

REPORT INFORMATION
  Report Type: Spontaneous
  Country: KR (occurrence: KR)
  Receive Date: 20251029
  Receipt Date: 20251029
  Transmission Date: 20260118
  Serious: Yes (Hospitalization)
  Sender: ROCHE
  Company Number: KR-002147023-NVSC2025KR163932

PATIENT

DRUGS (1)
  1. XOLAIR [Suspect]
     Active Substance: OMALIZUMAB
     Indication: Product used for unknown indication
     Dosage: UNK
     Route: 058
     Dates: start: 202510

REACTIONS (4)
  - Generalised oedema [Recovering/Resolving]
  - Insomnia [Unknown]
  - Thyroid hormones increased [Unknown]
  - Swelling face [Unknown]

NARRATIVE: CASE EVENT DATE: 20251001
